FAERS Safety Report 23054181 (Version 1)
Quarter: 2023Q4

REPORT INFORMATION
  Report Type: Spontaneous
  Country: US (occurrence: US)
  Receive Date: 20231011
  Receipt Date: 20231011
  Transmission Date: 20240109
  Serious: No
  Sender: FDA-Public Use
  Company Number: US-ELI_LILLY_AND_COMPANY-US202310005237

PATIENT
  Sex: Female

DRUGS (15)
  1. TRULICITY [Suspect]
     Active Substance: DULAGLUTIDE
     Indication: Type 2 diabetes mellitus
     Dosage: 3 MG, UNKNOWN
     Route: 058
     Dates: start: 20220901
  2. ACYCLOVIR SODIUM [Concomitant]
     Active Substance: ACYCLOVIR SODIUM
     Indication: Product used for unknown indication
     Dosage: 400 MG, BID
     Route: 065
  3. PRILOSEC [Concomitant]
     Active Substance: OMEPRAZOLE MAGNESIUM
     Indication: Product used for unknown indication
     Dosage: 120 MG, BID
     Route: 065
  4. BLACK SEED OIL [Concomitant]
     Indication: Type 2 diabetes mellitus
  5. MAGNESIUM GLYCINATE DIHYDRATE [Concomitant]
     Indication: Type 2 diabetes mellitus
  6. MAGNESIUM BISGLYCINATE [Concomitant]
     Indication: Type 2 diabetes mellitus
     Dosage: 300 MG, DAILY
  7. VITAMIN B12 [Concomitant]
     Active Substance: CYANOCOBALAMIN
     Indication: Type 2 diabetes mellitus
     Dosage: 1000 UG, UNKNOWN
  8. ZINC [Concomitant]
     Active Substance: ZINC
     Indication: Type 2 diabetes mellitus
     Dosage: 50 MG, UNKNOWN
  9. VITAMIN K2 FUSO [Concomitant]
     Indication: Type 2 diabetes mellitus
     Dosage: 100 UG, UNKNOWN
  10. VITAMIN D3 [Concomitant]
     Active Substance: CHOLECALCIFEROL
     Indication: Type 2 diabetes mellitus
     Dosage: UNK UNK, BID (35000 IU TWICE A DAY)
  11. WIXAR NATURALS SEA MOSS [Concomitant]
  12. FUCUS VESICULOSUS [Concomitant]
     Active Substance: FUCUS VESICULOSUS
     Indication: Type 2 diabetes mellitus
  13. MILK THISTLE 35000 PLUS TAURINE [Concomitant]
     Indication: Type 2 diabetes mellitus
  14. SHILAJITVADI BATI [Concomitant]
     Indication: Type 2 diabetes mellitus
  15. DIETARY SUPPLEMENT [Concomitant]
     Active Substance: DIETARY SUPPLEMENT
     Indication: Type 2 diabetes mellitus

REACTIONS (1)
  - Food craving [Not Recovered/Not Resolved]
